FAERS Safety Report 5213117-9 (Version None)
Quarter: 2007Q1

REPORT INFORMATION
  Report Type: 
  Country: None (occurrence: None)
  Receive Date: 20070112
  Receipt Date: 20070103
  Transmission Date: 20070707
  Serious: Yes (Other)
  Sender: FDA-Public Use
  Company Number: 2007301571

PATIENT
  Age: 40 Year
  Sex: Female
  Weight: 122.4712 kg

DRUGS (2)
  1. SUDAFED 12 HOUR [Suspect]
     Indication: SINUS CONGESTION
     Dosage: 1 CAPLET DAILY AS NEEDED, ORAL
     Route: 048
     Dates: start: 20061201, end: 20070102
  2. VICKS INHALER (CAMPHOR, MENTHOL, METHYLSALICLATE, PUMILIO PINE OIL) [Suspect]

REACTIONS (4)
  - BLOOD PRESSURE INCREASED [None]
  - MIDDLE INSOMNIA [None]
  - NERVOUSNESS [None]
  - TREMOR [None]
